FAERS Safety Report 6256790-9 (Version None)
Quarter: 2009Q3

REPORT INFORMATION
  Report Type: 
  Country: None (occurrence: None)
  Receive Date: 20090706
  Receipt Date: 20090625
  Transmission Date: 20100115
  Serious: Yes (Life-Threatening, Hospitalization)
  Sender: FDA-Public Use
  Company Number: FR-JNJFOC-20090700089

PATIENT
  Sex: Female

DRUGS (9)
  1. IXPRIM [Suspect]
     Indication: NECK PAIN
     Route: 048
     Dates: start: 20090417, end: 20090425
  2. MALOCIDE [Suspect]
     Indication: EYE INFECTION TOXOPLASMAL
     Route: 048
  3. ADIAZINE [Suspect]
     Indication: EYE INFECTION TOXOPLASMAL
     Route: 048
  4. CALCIUM FOLINATE [Suspect]
     Indication: EYE INFECTION TOXOPLASMAL
     Route: 048
  5. MAGNE-B6 /00869101/ [Suspect]
     Indication: DRUG USE FOR UNKNOWN INDICATION
     Route: 048
  6. MOPRAL [Suspect]
     Indication: DRUG USE FOR UNKNOWN INDICATION
     Route: 048
  7. CARDIOCALM [Suspect]
     Indication: DRUG USE FOR UNKNOWN INDICATION
     Route: 065
  8. HOLGYEME [Concomitant]
  9. CORTANCYL [Concomitant]

REACTIONS (1)
  - DRUG RASH WITH EOSINOPHILIA AND SYSTEMIC SYMPTOMS [None]
